FAERS Safety Report 10656987 (Version 2)
Quarter: 2015Q1

REPORT INFORMATION
  Report Type: Other
  Country: IT (occurrence: IT)
  Receive Date: 20141217
  Receipt Date: 20150119
  Transmission Date: 20150720
  Serious: Yes (Hospitalization)
  Sender: FDA-Public Use
  Company Number: IT-SUN PHARMACEUTICAL INDUSTRIES LTD-2014SUN02829

PATIENT

DRUGS (7)
  1. MAG 2 2.25 G POWDER FOR ORAL SOLUTION [Concomitant]
     Dosage: 4.5 GRAMMI
     Route: 048
     Dates: start: 20141107, end: 20141115
  2. PACLITAXEL. [Concomitant]
     Active Substance: PACLITAXEL
     Indication: SQUAMOUS ENDOMETRIAL CARCINOMA
     Dosage: 60 MG/M2
     Route: 042
     Dates: start: 20140912, end: 20141115
  3. CARBOPLATIN 10 MG/ML CONCENTRATE FOR SOLUTION FOR INFUSION [Suspect]
     Active Substance: CARBOPLATIN
     Indication: PRODUCT USED FOR UNKNOWN INDICATION
     Dosage: 1.5 MG CYCLICAL
     Route: 042
     Dates: start: 20140912, end: 20141115
  4. CALCIUM SANDOZ [Concomitant]
     Active Substance: CALCIUM
     Dosage: 2 UNITA^ POSOLOGICA
     Route: 048
     Dates: start: 20141107, end: 20141115
  5. ZOMETA [Concomitant]
     Active Substance: ZOLEDRONIC ACID
     Dosage: 3 MILLIGRAMMI
     Route: 042
     Dates: start: 20140912, end: 20141115
  6. SODIUM BICARBONATE. [Concomitant]
     Active Substance: SODIUM BICARBONATE
     Dosage: 150 MG, 3-4 TIMES A DAY
     Route: 048
  7. KCL RETARD 600 MG [Concomitant]
     Dosage: 600 MILLIGRAMMI
     Route: 048
     Dates: start: 20141107, end: 20141115

REACTIONS (3)
  - Hypokalaemia [Recovering/Resolving]
  - Asthenia [Recovering/Resolving]
  - Quadriparesis [Recovering/Resolving]

NARRATIVE: CASE EVENT DATE: 20141115
